FAERS Safety Report 6122167-X (Version None)
Quarter: 2009Q1

REPORT INFORMATION
  Report Type: 
  Country: None (occurrence: None)
  Receive Date: 20090318
  Receipt Date: 20090311
  Transmission Date: 20090719
  Serious: Yes (Hospitalization, Other)
  Sender: FDA-Public Use
  Company Number: PHHY2009DE09344

PATIENT
  Sex: Female

DRUGS (6)
  1. RASILEZ [Suspect]
     Indication: HYPERTENSION
     Dosage: 150 MG, BID
  2. RASILEZ [Suspect]
     Dosage: 300 MG,  QD
  3. CETRIZINE [Concomitant]
     Dosage: UNK
  4. RAMIPRIL [Concomitant]
     Dosage: UNK
  5. INSIDON ^CIBA-GEIGY^ [Concomitant]
     Dosage: UNK
  6. SIMVASTATIN [Concomitant]
     Dosage: 20 MG, QD

REACTIONS (9)
  - ALANINE AMINOTRANSFERASE INCREASED [None]
  - ASPARTATE AMINOTRANSFERASE INCREASED [None]
  - BLOOD BILIRUBIN INCREASED [None]
  - GAMMA-GLUTAMYLTRANSFERASE INCREASED [None]
  - HAEMORRHAGE [None]
  - LIVER FUNCTION TEST ABNORMAL [None]
  - MOUTH HAEMORRHAGE [None]
  - PETECHIAE [None]
  - THROMBOCYTOPENIA [None]
